FAERS Safety Report 9714335 (Version 2)
Quarter: 2013Q4

REPORT INFORMATION
  Report Type: Other
  Country: DK (occurrence: IT)
  Receive Date: 20131126
  Receipt Date: 20131126
  Transmission Date: 20140711
  Serious: Yes (Other)
  Sender: FDA-Public Use
  Company Number: IT-FRI-1000041360

PATIENT
  Sex: Female

DRUGS (2)
  1. ESCITALOPRAM [Suspect]
     Indication: MAJOR DEPRESSION
     Dosage: 10 MG
  2. ESCITALOPRAM [Suspect]
     Dosage: 20 MG

REACTIONS (2)
  - Pregnancy [Recovered/Resolved]
  - Gestational diabetes [Unknown]
